FAERS Safety Report 9076836 (Version 1)
Quarter: 2013Q1

REPORT INFORMATION
  Report Type: Report from Study
  Country: US (occurrence: US)
  Receive Date: 20130129
  Receipt Date: 20130129
  Transmission Date: 20140127
  Serious: No
  Sender: FDA-Public Use
  Company Number: US-ABBOTT-12P-163-0890068-00

PATIENT
  Sex: Male

DRUGS (2)
  1. HUMIRA 40 MG/0.8 ML PEN [Suspect]
     Indication: CROHN^S DISEASE
     Route: 058
     Dates: start: 201110
  2. PREDNISONE [Concomitant]
     Indication: PRODUCT USED FOR UNKNOWN INDICATION
     Dosage: DAILY

REACTIONS (7)
  - Wound drainage [Not Recovered/Not Resolved]
  - Furuncle [Unknown]
  - Pain [Unknown]
  - Local swelling [Unknown]
  - Pain in extremity [Not Recovered/Not Resolved]
  - Furuncle [Not Recovered/Not Resolved]
  - Hordeolum [Not Recovered/Not Resolved]
